FAERS Safety Report 24977685 (Version 1)
Quarter: 2025Q1

REPORT INFORMATION
  Report Type: Spontaneous
  Country: GB (occurrence: GB)
  Receive Date: 20250217
  Receipt Date: 20250217
  Transmission Date: 20250409
  Serious: Yes (Disabling, Other)
  Sender: TEVA
  Company Number: GB-MHRA-TPP53527558C11236417YC1738844432466

PATIENT
  Age: 51 Year
  Sex: Male
  Weight: 83 kg

DRUGS (3)
  1. LOSARTAN [Suspect]
     Active Substance: LOSARTAN
     Indication: Blood pressure measurement
     Dosage: TAKE ONE DAILY FOR BLOOD PRESSURE, DURATION: 239 DAYS, DAILY DOSE:50 MG DAILY
     Route: 065
     Dates: start: 20240409, end: 20241203
  2. SOLIFENACIN [Concomitant]
     Active Substance: SOLIFENACIN
     Indication: Product used for unknown indication
     Dosage: TAKE ONE DAILY, DAILY DOSE : 1 DOSAGE FORM DAILY
     Route: 065
     Dates: start: 20230523
  3. AMLODIPINE [Concomitant]
     Active Substance: AMLODIPINE BESYLATE
     Indication: Blood pressure measurement
     Dosage: TAKE ONE DAILY FOR BLOOD PRESSURE, DAILY DOSE : 1 DOSAGE FORM DAILY
     Route: 065
     Dates: start: 20241203

REACTIONS (3)
  - Dyspnoea [Recovered/Resolved]
  - Dysphagia [Recovered/Resolved]
  - Chest pain [Recovered/Resolved]

NARRATIVE: CASE EVENT DATE: 20241201
